FAERS Safety Report 25524623 (Version 2)
Quarter: 2025Q4

REPORT INFORMATION
  Report Type: Spontaneous
  Country: SG (occurrence: SG)
  Receive Date: 20250707
  Receipt Date: 20251024
  Transmission Date: 20260117
  Serious: Yes (Other)
  Sender: ROCHE
  Company Number: SG-ROCHE-10000326178

PATIENT
  Age: 76 Year
  Sex: Female

DRUGS (1)
  1. PHESGO [Suspect]
     Active Substance: HYALURONIDASE-ZZXF\PERTUZUMAB\TRASTUZUMAB
     Indication: Breast cancer
     Route: 065

REACTIONS (6)
  - Mastectomy [Unknown]
  - Fatigue [Unknown]
  - Somnolence [Unknown]
  - Pyrexia [Unknown]
  - Paraesthesia [Unknown]
  - Asthenia [Unknown]
